FAERS Safety Report 4575130-4 (Version None)
Quarter: 2005Q1

REPORT INFORMATION
  Report Type: 
  Country: None (occurrence: None)
  Receive Date: 20050208
  Receipt Date: 20050128
  Transmission Date: 20050727
  Serious: Yes (Hospitalization, Other)
  Sender: FDA-Public Use
  Company Number: PHEH2005US01468

PATIENT
  Age: 75 Year
  Sex: Male

DRUGS (1)
  1. NEORAL [Suspect]
     Indication: HEART TRANSPLANT

REACTIONS (3)
  - CORONARY ARTERY SURGERY [None]
  - RED BLOOD CELL SEDIMENTATION RATE [None]
  - RHEUMATOID FACTOR INCREASED [None]
